FAERS Safety Report 9789368 (Version 1)
Quarter: 2013Q4

REPORT INFORMATION
  Report Type: Report from Study
  Country: US (occurrence: US)
  Receive Date: 20131231
  Receipt Date: 20131231
  Transmission Date: 20140711
  Serious: Yes (Death)
  Sender: FDA-Public Use
  Company Number: US-BAXTER-2013BAX053536

PATIENT
  Sex: 0

DRUGS (5)
  1. CYCLOPHOSPHAMIDE FOR INJECTION, USP [Suspect]
     Indication: NON-HODGKIN^S LYMPHOMA
  2. CYCLOPHOSPHAMIDE FOR INJECTION, USP [Suspect]
  3. DOXORUBICIN [Suspect]
     Indication: NON-HODGKIN^S LYMPHOMA
  4. VINCRISTINE [Suspect]
     Indication: NON-HODGKIN^S LYMPHOMA
  5. PREDNISONE [Suspect]
     Indication: NON-HODGKIN^S LYMPHOMA

REACTIONS (1)
  - Death [Fatal]
